FAERS Safety Report 16790955 (Version 2)
Quarter: 2019Q4

REPORT INFORMATION
  Report Type: Spontaneous
  Country: FR (occurrence: FR)
  Receive Date: 20190910
  Receipt Date: 20191025
  Transmission Date: 20200122
  Serious: Yes (Life-Threatening)
  Sender: FDA-Public Use
  Company Number: FR-PFIZER INC-2019388181

PATIENT
  Age: 34 Year
  Sex: Male
  Weight: 60 kg

DRUGS (9)
  1. DAFALGAN [Concomitant]
     Active Substance: ACETAMINOPHEN
     Dosage: UNK
     Route: 048
     Dates: start: 20190705
  2. LIORESAL [Concomitant]
     Active Substance: BACLOFEN
     Dosage: UNK
     Route: 048
  3. IMOVANE [Concomitant]
     Active Substance: ZOPICLONE
     Dosage: UNK
     Route: 048
  4. ZYVOXID [Suspect]
     Active Substance: LINEZOLID
     Indication: OSTEITIS
     Dosage: 1200 MG, 1X/DAY
     Route: 048
     Dates: start: 20190703, end: 20190718
  5. IPRATROPIUM [Concomitant]
     Active Substance: IPRATROPIUM
     Dosage: UNK
     Route: 045
     Dates: start: 20190708
  6. LYSANXIA [Concomitant]
     Active Substance: PRAZEPAM
     Dosage: UNK
     Route: 048
  7. TERBUTALINE [Concomitant]
     Active Substance: TERBUTALINE
     Dosage: UNK
     Route: 045
     Dates: start: 20190708
  8. LOVENOX HP [Concomitant]
     Active Substance: ENOXAPARIN SODIUM
     Dosage: UNK
     Route: 058
     Dates: start: 20190705
  9. TAZOCILLINE [Suspect]
     Active Substance: PIPERACILLIN SODIUM\TAZOBACTAM SODIUM
     Indication: OSTEITIS
     Dosage: 12 G, 1X/DAY
     Route: 041
     Dates: start: 20190703, end: 20190730

REACTIONS (3)
  - Agranulocytosis [Recovered/Resolved]
  - Off label use [Unknown]
  - Product use in unapproved indication [Unknown]

NARRATIVE: CASE EVENT DATE: 20190730
